FAERS Safety Report 12121727 (Version 1)
Quarter: 2016Q1

REPORT INFORMATION
  Report Type: Spontaneous
  Country: US (occurrence: US)
  Receive Date: 20160226
  Receipt Date: 20160226
  Transmission Date: 20160526
  Serious: No
  Sender: FDA-Public Use
  Company Number: US-ALLERGAN-1209350US

PATIENT
  Age: 58 Year
  Sex: Male

DRUGS (2)
  1. REFRESH OPTIVE [Suspect]
     Active Substance: CARBOXYMETHYLCELLULOSE SODIUM\GLYCERIN
     Indication: DRY EYE
     Dosage: 1 GTT OS BID TO TID
     Route: 047
     Dates: start: 20120615, end: 20120705
  2. GLUCOPHAGE                         /00082701/ [Concomitant]
     Indication: TYPE 2 DIABETES MELLITUS
     Dosage: ONE PO TID
     Route: 048

REACTIONS (1)
  - Instillation site pain [Not Recovered/Not Resolved]
